FAERS Safety Report 7828372-6 (Version None)
Quarter: 2011Q4

REPORT INFORMATION
  Report Type: 
  Country: None (occurrence: None)
  Receive Date: 20111020
  Receipt Date: 20111018
  Transmission Date: 20120403
  Serious: No
  Sender: FDA-Public Use
  Company Number: US-PFIZER INC-2011251208

PATIENT

DRUGS (1)
  1. PRISTIQ [Suspect]
     Indication: WEIGHT DECREASED
     Dosage: UNK

REACTIONS (1)
  - DECREASED APPETITE [None]
